FAERS Safety Report 8877558 (Version 2)
Quarter: 2012Q4

REPORT INFORMATION
  Report Type: 
  Country: US (occurrence: US)
  Receive Date: 20121024
  Receipt Date: 20121226
  Transmission Date: 20130627
  Serious: Yes (Other)
  Sender: FDA-Public Use
  Company Number: US-PFIZER INC-2012264133

PATIENT
  Age: 59 Year
  Sex: Female
  Weight: 85.71 kg

DRUGS (3)
  1. LIPITOR [Suspect]
     Indication: HIGH CHOLESTEROL
     Dosage: 10 mg, 1x/day
     Route: 048
     Dates: start: 200011
  2. SYNTHROID [Concomitant]
     Dosage: 112 ug, UNK
  3. LISINOPRIL [Concomitant]
     Dosage: 10 mg, UNK

REACTIONS (1)
  - Road traffic accident [Unknown]
